FAERS Safety Report 8529635 (Version 4)
Quarter: 2014Q2

REPORT INFORMATION
  Report Type: Report from Study
  Country: CA (occurrence: CA)
  Receive Date: 20120425
  Receipt Date: 20140508
  Transmission Date: 20141212
  Serious: Yes (Other)
  Sender: FDA-Public Use
  Company Number: CA-ROCHE-1061157

PATIENT
  Age: 52 Year
  Sex: Female
  Weight: 75 kg

DRUGS (11)
  1. ACTEMRA [Suspect]
     Indication: RHEUMATOID ARTHRITIS
     Route: 042
     Dates: start: 20101117
  2. ACTEMRA [Suspect]
     Route: 042
     Dates: start: 20110405
  3. ACTEMRA [Suspect]
     Route: 042
     Dates: start: 20110922
  4. ACTEMRA [Suspect]
     Route: 042
     Dates: start: 20130409
  5. METHOTREXATE [Concomitant]
     Route: 065
  6. FOLIC ACID [Concomitant]
     Route: 065
  7. CYTOTEC [Concomitant]
     Route: 065
  8. ELAVIL (CANADA) [Concomitant]
     Route: 065
  9. ALPRAZ [Concomitant]
     Route: 065
  10. ESTALIS [Concomitant]
  11. AMLODIPINE [Concomitant]

REACTIONS (10)
  - Pneumonia [Recovering/Resolving]
  - Hypertension [Unknown]
  - Nasal congestion [Unknown]
  - Oropharyngeal pain [Unknown]
  - Vocal cord inflammation [Not Recovered/Not Resolved]
  - Weight fluctuation [Not Recovered/Not Resolved]
  - Influenza [Recovered/Resolved]
  - Nasopharyngitis [Not Recovered/Not Resolved]
  - Influenza [Not Recovered/Not Resolved]
  - Nasopharyngitis [Not Recovered/Not Resolved]
